FAERS Safety Report 7313132-5 (Version None)
Quarter: 2011Q1

REPORT INFORMATION
  Report Type: 
  Country: None (occurrence: None)
  Receive Date: 20110215
  Receipt Date: 20110215
  Transmission Date: 20110831
  Serious: No
  Sender: FDA-Public Use
  Company Number: None

PATIENT
  Age: 68 Year
  Sex: Male
  Weight: 78 kg

DRUGS (1)
  1. PHENYTOIN [Suspect]
     Dosage: PO
     Route: 048
     Dates: start: 20101231, end: 20110126

REACTIONS (1)
  - STEVENS-JOHNSON SYNDROME [None]
